FAERS Safety Report 14385153 (Version 1)
Quarter: 2018Q1

REPORT INFORMATION
  Report Type: Spontaneous
  Country: US (occurrence: US)
  Receive Date: 20180115
  Receipt Date: 20180115
  Transmission Date: 20180509
  Serious: Yes (Other)
  Sender: FDA-Public Use
  Company Number: US-SA-2016SA236134

PATIENT
  Age: 55 Year
  Sex: Female
  Weight: 67.58 kg

DRUGS (4)
  1. TAXOTERE [Suspect]
     Active Substance: DOCETAXEL
     Indication: BREAST CANCER
     Dosage: 125-130 MG
     Route: 051
     Dates: start: 20140712, end: 20140712
  2. PARAPLATIN [Concomitant]
     Active Substance: CARBOPLATIN
  3. HERCEPTIN [Concomitant]
     Active Substance: TRASTUZUMAB
  4. TAXOTERE [Suspect]
     Active Substance: DOCETAXEL
     Indication: BREAST CANCER
     Dosage: 125-130 MG
     Route: 051
     Dates: start: 20140429, end: 20140429

REACTIONS (7)
  - Anxiety [Unknown]
  - Impaired quality of life [Unknown]
  - Alopecia [Recovering/Resolving]
  - Pain [Unknown]
  - Emotional distress [Unknown]
  - Impaired work ability [Unknown]
  - Injury [Unknown]

NARRATIVE: CASE EVENT DATE: 2015
